FAERS Safety Report 17495309 (Version 3)
Quarter: 2020Q1

REPORT INFORMATION
  Report Type: Spontaneous
  Country: PL (occurrence: PL)
  Receive Date: 20200303
  Receipt Date: 20200318
  Transmission Date: 20200409
  Serious: Yes (Hospitalization, Other)
  Sender: FDA-Public Use
  Company Number: PL-VELOXIS PHARMACEUTICALS-2020VELPL-000199

PATIENT
  Age: 65 Year
  Sex: Male

DRUGS (1)
  1. ENVARSUS XR [Suspect]
     Active Substance: TACROLIMUS
     Indication: IMMUNOSUPPRESSION
     Dosage: 1 G, QD
     Route: 065

REACTIONS (6)
  - Dyspnoea [Unknown]
  - Squamous cell carcinoma of lung [Unknown]
  - Weight decreased [Unknown]
  - Asthenia [Unknown]
  - Cough [Unknown]
  - Haemoptysis [Unknown]

NARRATIVE: CASE EVENT DATE: 2018
